FAERS Safety Report 10540360 (Version 3)
Quarter: 2014Q4

REPORT INFORMATION
  Report Type: Spontaneous
  Country: JP (occurrence: JP)
  Receive Date: 20141024
  Receipt Date: 20141123
  Transmission Date: 20150529
  Serious: Yes (Other)
  Sender: FDA-Public Use
  Company Number: PHHY2014JP138176

PATIENT
  Age: 43 Year
  Sex: Male

DRUGS (3)
  1. FUNGIZONE [Suspect]
     Active Substance: AMPHOTERICIN B
     Indication: MUCOCUTANEOUS CANDIDIASIS
     Dosage: UNK
     Route: 048
  2. FLORID [Suspect]
     Active Substance: MICONAZOLE
     Indication: MUCOCUTANEOUS CANDIDIASIS
     Route: 048
  3. LAMISIL [Suspect]
     Active Substance: TERBINAFINE HYDROCHLORIDE
     Indication: MUCOCUTANEOUS CANDIDIASIS
     Route: 048

REACTIONS (3)
  - Squamous cell carcinoma [Unknown]
  - Dizziness [Unknown]
  - Therapeutic response decreased [Unknown]

NARRATIVE: CASE EVENT DATE: 200612
